FAERS Safety Report 4630506-1 (Version None)
Quarter: 2005Q2

REPORT INFORMATION
  Report Type: 
  Country: None (occurrence: None)
  Receive Date: 20050406
  Receipt Date: 20050318
  Transmission Date: 20051028
  Serious: Yes (Other)
  Sender: FDA-Public Use
  Company Number: USA040669379

PATIENT
  Age: 79 Year
  Sex: Female
  Weight: 57 kg

DRUGS (6)
  1. EVISTA [Suspect]
     Indication: OSTEOPOROSIS PROPHYLAXIS
     Dosage: 60 MG/1 DAY
     Dates: start: 20040604, end: 20050201
  2. VITAMINS [Concomitant]
  3. ENALAPRIL [Concomitant]
  4. LEVOXYL(LEVOXYTHROXINE SODIUM) [Concomitant]
  5. GLUCOPHAGE [Concomitant]
  6. SYNTHROID [Concomitant]

REACTIONS (9)
  - DIZZINESS [None]
  - DRY SKIN [None]
  - ERYTHEMA [None]
  - FEELING HOT [None]
  - HIGH DENSITY LIPOPROTEIN INCREASED [None]
  - OEDEMA PERIPHERAL [None]
  - SKIN FISSURES [None]
  - TRANSIENT ISCHAEMIC ATTACK [None]
  - VERTIGO [None]
